FAERS Safety Report 16447463 (Version 3)
Quarter: 2020Q4

REPORT INFORMATION
  Report Type: Spontaneous
  Country: AU (occurrence: AU)
  Receive Date: 20190619
  Receipt Date: 20201214
  Transmission Date: 20210113
  Serious: No
  Sender: FDA-Public Use
  Company Number: AU-BEH-2019103109

PATIENT
  Age: 72 Year
  Sex: Female
  Weight: 75 kg

DRUGS (14)
  1. VITAMIN D [COLECALCIFEROL] [Concomitant]
     Active Substance: CHOLECALCIFEROL
     Dosage: 2000 INTERNATIONAL UNIT, QD
     Route: 048
  2. PREGABALIN. [Concomitant]
     Active Substance: PREGABALIN
     Indication: NEURALGIA
     Dosage: 75 GRAM, QD IN MORNING
     Route: 048
  3. VESICARE [Concomitant]
     Active Substance: SOLIFENACIN SUCCINATE
     Indication: HYPERTONIC BLADDER
     Dosage: 1 TAB, QD
     Route: 048
  4. PRIVIGEN [Suspect]
     Active Substance: HUMAN IMMUNOGLOBULIN G
     Dosage: UNK
     Route: 042
  5. PRIVIGEN [Suspect]
     Active Substance: HUMAN IMMUNOGLOBULIN G
     Dosage: 40 GRAM, TOT
     Route: 042
     Dates: start: 20190326, end: 20190326
  6. PRIVIGEN [Suspect]
     Active Substance: HUMAN IMMUNOGLOBULIN G
     Dosage: UNK
     Route: 042
     Dates: start: 20190327, end: 20190327
  7. DOXYCYCLINE. [Concomitant]
     Active Substance: DOXYCYCLINE
     Indication: ANTIBIOTIC PROPHYLAXIS
     Dosage: 50 MILLIGRAM, BID
     Route: 048
  8. CETIRIZINE [Concomitant]
     Active Substance: CETIRIZINE HYDROCHLORIDE
     Indication: DERMATITIS ALLERGIC
     Dosage: 10 MILLIGRAM, QD
     Route: 048
  9. NOVASONE [Concomitant]
     Active Substance: MOMETASONE FUROATE
     Dosage: UNK, BID
     Route: 061
  10. PRIVIGEN [Suspect]
     Active Substance: HUMAN IMMUNOGLOBULIN G
     Indication: PEMPHIGOID
     Dosage: 65 GRAM, QMT 2 CYCLES/ 4 DOSES
     Route: 042
     Dates: start: 20190521, end: 20190522
  11. PRIVIGEN [Suspect]
     Active Substance: HUMAN IMMUNOGLOBULIN G
     Dosage: UNK
     Route: 042
  12. DENOSUMAB [Concomitant]
     Active Substance: DENOSUMAB
     Route: 065
  13. PREGABALIN. [Concomitant]
     Active Substance: PREGABALIN
     Dosage: 150 GRAM, QD AT NIGHT
     Route: 048
  14. COLOXYL WITH SENNA [Concomitant]
     Active Substance: DOCUSATE SODIUM\SENNOSIDES A AND B
     Indication: CONSTIPATION
     Dosage: 2 TABS, QD
     Route: 048

REACTIONS (8)
  - Body temperature increased [Recovered/Resolved]
  - No adverse event [Unknown]
  - Nausea [Recovered/Resolved]
  - Body temperature increased [Recovered/Resolved]
  - Chills [Recovered/Resolved]
  - Chills [Recovered/Resolved]
  - Infusion related reaction [Recovered/Resolved]
  - Off label use [Unknown]

NARRATIVE: CASE EVENT DATE: 2019
